FAERS Safety Report 9664851 (Version 1)
Quarter: 2013Q4

REPORT INFORMATION
  Report Type: Spontaneous
  Country: NO (occurrence: None)
  Receive Date: 20131031
  Receipt Date: 20131031
  Transmission Date: 20140711
  Serious: Yes (Other)
  Sender: FDA-Public Use
  Company Number: LOC-01184

PATIENT
  Age: 54 Year
  Sex: Male

DRUGS (6)
  1. LOCOID [Suspect]
     Indication: RASH
     Dosage: DOSAGE FORM: UNSPECIFIED
     Route: 061
  2. ZYRTEC [Suspect]
     Indication: RASH
     Dosage: DOSAGE FORM: UNSPECIFIED
  3. TELAPREVIR [Suspect]
     Indication: HEPATITIS C
     Dates: start: 201001
  4. RIBAVIRIN (RIBAVIRIN) [Concomitant]
  5. PEGASYS [Concomitant]
  6. PERSANTIN RETARD (DIPYRIDAMOLE) [Concomitant]

REACTIONS (2)
  - Drug ineffective [None]
  - Rash [None]
